FAERS Safety Report 6031966-4 (Version None)
Quarter: 2009Q1

REPORT INFORMATION
  Report Type: 
  Country: None (occurrence: None)
  Receive Date: 20090108
  Receipt Date: 20081230
  Transmission Date: 20090719
  Serious: Yes (Hospitalization)
  Sender: FDA-Public Use
  Company Number: CA-SANOFI-SYNTHELABO-D01200805614

PATIENT
  Sex: Male
  Weight: 80.6 kg

DRUGS (20)
  1. ATIVAN [Concomitant]
     Indication: ANXIETY
     Dates: start: 20080704
  2. HMF FORTE [Concomitant]
     Indication: IRON DEFICIENCY
     Dates: start: 20080716
  3. MULTI-VITAMIN [Concomitant]
  4. ASCORBIC ACID [Concomitant]
     Indication: IRON DEFICIENCY
     Dosage: 500 MG
     Dates: start: 20080711
  5. IBUPROFEN TABLETS [Concomitant]
     Indication: PAIN
     Dates: start: 20080711
  6. PH BALANCE [Concomitant]
     Dates: start: 20080716
  7. PALAFER [Concomitant]
     Indication: IRON DEFICIENCY ANAEMIA
     Dosage: 300 MG
     Dates: start: 20080709
  8. MCP FRUIT PECTIN [Concomitant]
     Dates: start: 20080716
  9. FLAXSEED OIL [Concomitant]
     Dates: start: 20080716
  10. ECGC - GREEN TEA EXTRACT [Concomitant]
     Dates: start: 20080716
  11. MELATONIN [Concomitant]
     Indication: SLEEP DISORDER
     Dates: start: 20080716
  12. COLACE [Concomitant]
     Indication: CONSTIPATION
     Dates: start: 20080714
  13. MORPHINE [Concomitant]
     Indication: PAIN
     Dates: start: 20080711
  14. CODEINE SUL TAB [Concomitant]
     Dates: start: 20080711
  15. HELIXOR [Concomitant]
     Dates: start: 20080717
  16. PALAFER [Concomitant]
  17. LEUCOVORIN CALCIUM [Suspect]
     Route: 042
     Dates: start: 20080730, end: 20080730
  18. FLUOROURACIL [Suspect]
     Dosage: 400 MG/M?, IV BOLUS D1+D2 FOLLOWED BY 5-FU 2400 MG/M? OVER 46-HOUR CONTINUOUS INFUSION.
     Route: 042
     Dates: start: 20080730, end: 20080730
  19. OXALIPLATIN [Suspect]
     Route: 042
     Dates: start: 20080730, end: 20080730
  20. STUDY DRUG NOT GIVEN [Suspect]

REACTIONS (1)
  - LARGE INTESTINE PERFORATION [None]
